FAERS Safety Report 7492128-7 (Version None)
Quarter: 2011Q2

REPORT INFORMATION
  Report Type: 
  Country: None (occurrence: None)
  Receive Date: 20110519
  Receipt Date: 20110509
  Transmission Date: 20111010
  Serious: Yes (Other)
  Sender: FDA-Public Use
  Company Number: DE-JNJFOC-20110504178

PATIENT
  Age: 68 Year
  Sex: Male

DRUGS (4)
  1. SIMPONI [Suspect]
     Indication: RHEUMATOID ARTHRITIS
     Route: 058
     Dates: start: 20110422
  2. CORTISONE ACETATE [Concomitant]
     Dates: start: 20100501
  3. METHOTREXATE [Concomitant]
     Dates: start: 20100501
  4. SIMPONI [Suspect]
     Route: 058
     Dates: start: 20100322

REACTIONS (5)
  - HEADACHE [None]
  - SYNCOPE [None]
  - DIZZINESS [None]
  - BEDRIDDEN [None]
  - VOMITING [None]
